FAERS Safety Report 6288651-3 (Version None)
Quarter: 2009Q3

REPORT INFORMATION
  Report Type: 
  Country: None (occurrence: None)
  Receive Date: 20090729
  Receipt Date: 20090722
  Transmission Date: 20100115
  Serious: Yes (Life-Threatening)
  Sender: FDA-Public Use
  Company Number: CA-MERCK-0907CAN00110

PATIENT
  Age: 15 Year
  Sex: Female

DRUGS (2)
  1. SINGULAIR [Suspect]
     Route: 048
  2. VENLAFAXINE HYDROCHLORIDE [Concomitant]
     Route: 065

REACTIONS (1)
  - SUICIDE ATTEMPT [None]
